FAERS Safety Report 9155434 (Version 1)
Quarter: 2013Q1

REPORT INFORMATION
  Report Type: Spontaneous
  Country: PL (occurrence: PL)
  Receive Date: 20130311
  Receipt Date: 20130311
  Transmission Date: 20140127
  Serious: Yes (Other)
  Sender: FDA-Public Use
  Company Number: PL-PFIZER INC-2013079116

PATIENT
  Age: 30 Year
  Sex: Female

DRUGS (5)
  1. METHYLPREDNISOLONE SODIUM SUCCINATE [Suspect]
     Indication: HERPES GESTATIONIS
     Dosage: 125 MG/DAY
     Route: 042
  2. METHYLPREDNISOLONE SODIUM SUCCINATE [Suspect]
     Dosage: DECREASED TO 20 MG/DAY
     Route: 042
  3. PREDNISONE [Concomitant]
     Indication: HERPES GESTATIONIS
     Dosage: 40 MG/DAY
  4. PREDNISONE [Concomitant]
     Dosage: INCREASED TO 60 MG/DAY
  5. PREDNISONE [Concomitant]
     Dosage: INCREASED TO 80 MG/DAY

REACTIONS (4)
  - Staphylococcal infection [Unknown]
  - Furuncle [Unknown]
  - Central obesity [Unknown]
  - Cushingoid [Unknown]
